FAERS Safety Report 13654572 (Version 14)
Quarter: 2018Q4

REPORT INFORMATION
  Report Type: Report from Study
  Country: CA (occurrence: CA)
  Receive Date: 20170615
  Receipt Date: 20181218
  Transmission Date: 20190204
  Serious: Yes (Hospitalization, Other)
  Sender: FDA-Public Use
  Company Number: CA-ROCHE-1136232

PATIENT
  Age: 29 Year
  Sex: Female
  Weight: 79 kg

DRUGS (25)
  1. ACTEMRA [Suspect]
     Active Substance: TOCILIZUMAB
     Route: 042
     Dates: start: 20170609
  2. PLAQUENIL [Concomitant]
     Active Substance: HYDROXYCHLOROQUINE SULFATE
     Route: 065
  3. BENADRYL [Concomitant]
     Active Substance: DIPHENHYDRAMINE HYDROCHLORIDE
     Indication: PREMEDICATION
     Route: 042
  4. SOLU-MEDROL [Concomitant]
     Active Substance: METHYLPREDNISOLONE SODIUM SUCCINATE
     Indication: PREMEDICATION
     Route: 042
     Dates: start: 20171215
  5. SOLU-CORTEF [Concomitant]
     Active Substance: HYDROCORTISONE SODIUM SUCCINATE
     Route: 042
     Dates: start: 20161101, end: 20161129
  6. ACTEMRA [Suspect]
     Active Substance: TOCILIZUMAB
     Indication: RHEUMATOID ARTHRITIS
     Route: 042
     Dates: start: 20120223
  7. BENADRYL [Concomitant]
     Active Substance: DIPHENHYDRAMINE HYDROCHLORIDE
     Indication: PREMEDICATION
     Route: 042
     Dates: start: 20171215
  8. ACTEMRA [Suspect]
     Active Substance: TOCILIZUMAB
     Route: 042
     Dates: start: 20121030, end: 20121129
  9. FOLIC ACID. [Concomitant]
     Active Substance: FOLIC ACID
  10. SOLU-CORTEF [Concomitant]
     Active Substance: HYDROCORTISONE SODIUM SUCCINATE
     Indication: PREMEDICATION
     Route: 042
     Dates: start: 20160720, end: 20160816
  11. SOLU-CORTEF [Concomitant]
     Active Substance: HYDROCORTISONE SODIUM SUCCINATE
     Route: 042
     Dates: start: 20161229
  12. GRAVOL [Concomitant]
     Active Substance: DIMENHYDRINATE
     Indication: PREMEDICATION
     Route: 042
     Dates: start: 20160720
  13. GRAVOL [Concomitant]
     Active Substance: DIMENHYDRINATE
     Route: 042
  14. GRAVOL [Concomitant]
     Active Substance: DIMENHYDRINATE
     Indication: PREMEDICATION
     Route: 042
     Dates: start: 20171215
  15. LYRICA [Concomitant]
     Active Substance: PREGABALIN
     Route: 065
  16. ACTEMRA [Suspect]
     Active Substance: TOCILIZUMAB
     Route: 042
     Dates: start: 20150623
  17. ACTEMRA [Suspect]
     Active Substance: TOCILIZUMAB
     Route: 042
     Dates: start: 20151214
  18. BENADRYL [Concomitant]
     Active Substance: DIPHENHYDRAMINE HYDROCHLORIDE
     Route: 042
     Dates: start: 20160720
  19. METHOTREXATE. [Concomitant]
     Active Substance: METHOTREXATE
     Route: 048
  20. BENADRYL [Concomitant]
     Active Substance: DIPHENHYDRAMINE HYDROCHLORIDE
     Route: 048
  21. ACTEMRA [Suspect]
     Active Substance: TOCILIZUMAB
     Route: 042
     Dates: start: 20160603
  22. ACTEMRA [Suspect]
     Active Substance: TOCILIZUMAB
     Dosage: 46 INFUSION
     Route: 042
     Dates: start: 20180406
  23. CYMBALTA [Concomitant]
     Active Substance: DULOXETINE HYDROCHLORIDE
  24. COLCHICINE. [Concomitant]
     Active Substance: COLCHICINE
  25. SINGULAIR [Concomitant]
     Active Substance: MONTELUKAST SODIUM

REACTIONS (33)
  - Abdominal pain [Unknown]
  - Cholelithiasis [Unknown]
  - Liver function test abnormal [Recovered/Resolved]
  - Kidney infection [Unknown]
  - Pharyngitis [Recovered/Resolved]
  - Weight decreased [Recovered/Resolved]
  - Gastroenteritis viral [Unknown]
  - Nasopharyngitis [Recovering/Resolving]
  - Rheumatoid arthritis [Not Recovered/Not Resolved]
  - Pruritus [Recovering/Resolving]
  - Blindness unilateral [Recovering/Resolving]
  - Ear infection [Recovered/Resolved]
  - Secretion discharge [Recovered/Resolved]
  - Blood pressure systolic increased [Unknown]
  - Visual impairment [Unknown]
  - Bronchitis [Unknown]
  - Disability assessment scale score increased [Unknown]
  - Infusion related reaction [Unknown]
  - Productive cough [Recovered/Resolved]
  - Pyrexia [Recovered/Resolved]
  - Pain in extremity [Not Recovered/Not Resolved]
  - Ear infection [Unknown]
  - Optic neuritis [Unknown]
  - Pruritus [Recovering/Resolving]
  - Heart rate increased [Unknown]
  - Biliary colic [Recovered/Resolved]
  - Biliary dilatation [Unknown]
  - Asthma [Unknown]
  - Weight increased [Unknown]
  - Nausea [Recovering/Resolving]
  - Blood pressure increased [Unknown]
  - Blood pressure fluctuation [Unknown]
  - Pneumonia [Recovered/Resolved]

NARRATIVE: CASE EVENT DATE: 20120716
